FAERS Safety Report 8905816 (Version 3)
Quarter: 2013Q1

REPORT INFORMATION
  Report Type: Spontaneous
  Country: IT (occurrence: IT)
  Receive Date: 20121111
  Receipt Date: 20130102
  Transmission Date: 20140127
  Serious: Yes (Other)
  Sender: FDA-Public Use
  Company Number: PHHY2012IT102175

PATIENT
  Age: 76 Year
  Sex: Male

DRUGS (2)
  1. GLIVEC [Suspect]
     Indication: LIP AND/OR ORAL CAVITY CANCER
     Dosage: 800 MG, DAILY
     Route: 048
     Dates: start: 20090917, end: 20120701
  2. GLIVEC [Suspect]
     Dosage: UNK UKN, UNK

REACTIONS (1)
  - Osteonecrosis of jaw [Recovering/Resolving]
